FAERS Safety Report 21885125 (Version 1)
Quarter: 2023Q1

REPORT INFORMATION
  Report Type: Spontaneous
  Country: US (occurrence: None)
  Receive Date: 20230118
  Receipt Date: 20230118
  Transmission Date: 20230418
  Serious: Yes (Other)
  Sender: FDA-Public Use
  Company Number: None

PATIENT
  Age: 74 Year
  Sex: Female
  Weight: 85.5 kg

DRUGS (8)
  1. BENZONATATE [Suspect]
     Active Substance: BENZONATATE
     Indication: Influenza
     Dosage: OTHER QUANTITY : 1 CAPSULE(S);?FREQUENCY : EVERY 12 HOURS;?OTHER ROUTE : SWALLOWED WITH WATER;?
     Route: 050
     Dates: start: 20230117, end: 20230118
  2. Lopressor 100 mg twice a day [Concomitant]
  3. albuteral for asthma [Concomitant]
  4. DEVICE [Concomitant]
     Active Substance: DEVICE
  5. BASAGLAR [Concomitant]
     Active Substance: INSULIN GLARGINE
  6. VITAMIN C [Concomitant]
     Active Substance: ASCORBIC ACID
  7. VITAMIN D [Concomitant]
     Active Substance: VITAMIN D NOS
  8. DIETARY SUPPLEMENT\HERBALS\MILK THISTLE [Concomitant]
     Active Substance: DIETARY SUPPLEMENT\HERBALS\MILK THISTLE

REACTIONS (3)
  - Hypertension [None]
  - Tremor [None]
  - Product complaint [None]

NARRATIVE: CASE EVENT DATE: 20230118
